FAERS Safety Report 9207717 (Version 1)
Quarter: 2013Q2

REPORT INFORMATION
  Report Type: Report from Study
  Country: CA (occurrence: CA)
  Receive Date: 20130403
  Receipt Date: 20130403
  Transmission Date: 20140414
  Serious: Yes (Hospitalization)
  Sender: FDA-Public Use
  Company Number: CA-ABBOTT-13P-028-1069877-00

PATIENT
  Age: 58 Year
  Sex: Male

DRUGS (1)
  1. LUPRON DEPOT [Suspect]
     Indication: PROSTATE CANCER
     Route: 030
     Dates: start: 20120917

REACTIONS (3)
  - Wrist fracture [Recovering/Resolving]
  - Cervical vertebral fracture [Recovering/Resolving]
  - Fall [Unknown]
